FAERS Safety Report 26118829 (Version 1)
Quarter: 2025Q4

REPORT INFORMATION
  Report Type: Report from Study
  Country: EU (occurrence: EU)
  Receive Date: 20251203
  Receipt Date: 20251203
  Transmission Date: 20260118
  Serious: Yes (Hospitalization)
  Sender: ABBVIE
  Company Number: EU-ABBVIE-6573544

PATIENT
  Age: 58 Year
  Sex: Female

DRUGS (7)
  1. FOSCARBIDOPA\FOSLEVODOPA [Suspect]
     Active Substance: FOSCARBIDOPA\FOSLEVODOPA
     Indication: Parkinson^s disease
     Route: 058
     Dates: start: 20250317
  2. FOSCARBIDOPA\FOSLEVODOPA [Suspect]
     Active Substance: FOSCARBIDOPA\FOSLEVODOPA
     Dosage: HIGH 0.35M L/H MAIN 0.31M L/H LOW 0.2 7ML/H ED 0.25ML LOADING 0.9 ML
     Route: 058
     Dates: start: 2025
  3. BISOPROLOL FUMARATE [Concomitant]
     Active Substance: BISOPROLOL FUMARATE
     Indication: Product used for unknown indication
     Dosage: 2 X ? TB
  4. OLMESARTAN MEDOXOMIL [Concomitant]
     Active Substance: OLMESARTAN MEDOXOMIL
     Indication: Product used for unknown indication
     Dosage: 2 X 1 TB
  5. PANTOPRAZOLE SODIUM [Concomitant]
     Active Substance: PANTOPRAZOLE SODIUM
     Indication: Product used for unknown indication
  6. Zirid [Concomitant]
     Indication: Product used for unknown indication
     Dosage: 3 X ? TB
  7. Atopicontrol [Concomitant]
     Indication: Product used for unknown indication
     Dosage: ATOPI CONTROL SPRAY

REACTIONS (17)
  - Polyneuropathy [Not Recovered/Not Resolved]
  - Blood pressure increased [Unknown]
  - Skin exfoliation [Unknown]
  - Skin fissures [Not Recovered/Not Resolved]
  - Dermatitis atopic [Unknown]
  - Balance disorder [Unknown]
  - Fatigue [Unknown]
  - Dysgeusia [Unknown]
  - Dry mouth [Unknown]
  - Eructation [Unknown]
  - Chest pain [Unknown]
  - Musculoskeletal disorder [Unknown]
  - Blood immunoglobulin G increased [Unknown]
  - Skin discharge [Not Recovered/Not Resolved]
  - Pain in extremity [Unknown]
  - Musculoskeletal stiffness [Unknown]
  - Gastrooesophageal reflux disease [Unknown]

NARRATIVE: CASE EVENT DATE: 20250101
